FAERS Safety Report 23394536 (Version 1)
Quarter: 2024Q1

REPORT INFORMATION
  Report Type: Spontaneous
  Country: US (occurrence: US)
  Receive Date: 20240112
  Receipt Date: 20240112
  Transmission Date: 20240410
  Serious: No
  Sender: FDA-Public Use
  Company Number: US-ABBVIE-5581862

PATIENT
  Sex: Male

DRUGS (4)
  1. VENCLEXTA [Suspect]
     Active Substance: VENETOCLAX
     Indication: Chronic myelomonocytic leukaemia
     Dosage: FORM STRENGTH: 100MG
     Route: 048
     Dates: start: 20230607
  2. VENCLEXTA [Suspect]
     Active Substance: VENETOCLAX
     Indication: Chronic myelomonocytic leukaemia
     Dosage: FORM STRENGTH: 100MG
     Route: 048
  3. XOSPATA [Suspect]
     Active Substance: GILTERITINIB
     Indication: Chronic myelomonocytic leukaemia
     Dosage: FORM STRENGTH: 40MG
     Route: 048
     Dates: start: 20230607
  4. XOSPATA [Suspect]
     Active Substance: GILTERITINIB
     Indication: Chronic myelomonocytic leukaemia
     Dosage: FORM STRENGTH: 40MG
     Route: 048

REACTIONS (4)
  - Platelet count decreased [Unknown]
  - Depressed mood [Unknown]
  - Off label use [Unknown]
  - White blood cell count abnormal [Unknown]
